FAERS Safety Report 16087366 (Version 2)
Quarter: 2019Q2

REPORT INFORMATION
  Report Type: Spontaneous
  Country: CO (occurrence: CO)
  Receive Date: 20190319
  Receipt Date: 20190415
  Transmission Date: 20190711
  Serious: Yes (Hospitalization)
  Sender: FDA-Public Use
  Company Number: CO-ROCHE-2283339

PATIENT
  Sex: Female

DRUGS (2)
  1. ADRENALINE [Concomitant]
     Active Substance: EPINEPHRINE
     Dosage: WITH VENTURI AT 35%
     Route: 065
  2. RITUXIMAB. [Suspect]
     Active Substance: RITUXIMAB
     Indication: PRODUCT USED FOR UNKNOWN INDICATION
     Route: 065
     Dates: start: 20190219

REACTIONS (3)
  - Hypertensive emergency [Recovered/Resolved]
  - Hypersensitivity [Recovered/Resolved]
  - Pulmonary oedema [Recovered/Resolved]
